FAERS Safety Report 4868053-4 (Version None)
Quarter: 2005Q4

REPORT INFORMATION
  Report Type: 
  Country: None (occurrence: None)
  Receive Date: 20051227
  Receipt Date: 20051227
  Transmission Date: 20060501
  Serious: No
  Sender: FDA-Public Use
  Company Number: None

PATIENT
  Age: 61 Year
  Sex: Female
  Weight: 61.6892 kg

DRUGS (11)
  1. LAMICTAL [Suspect]
     Indication: BIPOLAR DISORDER
     Dosage: 200 MG DAILY
     Dates: start: 20031101
  2. LITHUM [Concomitant]
  3. PRAZOSINE [Concomitant]
  4. CLONAZEPAM [Concomitant]
  5. SEROQUEL [Concomitant]
  6. WELLBUTRIN [Concomitant]
  7. LEVOXOYL [Concomitant]
  8. VERAPAMIL [Concomitant]
  9. DYAZIDE [Concomitant]
  10. ARICEPT [Concomitant]
  11. FOLTX [Concomitant]

REACTIONS (4)
  - FATIGUE [None]
  - LYMPHADENOPATHY [None]
  - PROSTRATION [None]
  - PYREXIA [None]
